FAERS Safety Report 6037577-9 (Version None)
Quarter: 2009Q1

REPORT INFORMATION
  Report Type: 
  Country: None (occurrence: None)
  Receive Date: 20090114
  Receipt Date: 20090106
  Transmission Date: 20090719
  Serious: Yes (Hospitalization)
  Sender: FDA-Public Use
  Company Number: US-ELI_LILLY_AND_COMPANY-US200811004811

PATIENT
  Age: 68 Year
  Sex: Male

DRUGS (8)
  1. ZYPREXA [Suspect]
     Indication: BIPOLAR DISORDER
     Dosage: 10 MG, EACH MORNING
  2. K-DUR [Concomitant]
     Dosage: 20 MEQ, DAILY (1/D)
  3. ASPIRIN [Concomitant]
     Dosage: 1 D/F, DAILY (1/D)
  4. LISINOPRIL [Concomitant]
     Dosage: 10 MG, DAILY (1/D)
  5. LASIX [Concomitant]
     Dosage: 40 MG, DAILY (1/D)
  6. RESTORIL [Concomitant]
     Dosage: 1.5 MG, AS NEEDED
  7. XANAX [Concomitant]
     Dosage: 0.5 MG, 2/D
  8. COREG [Concomitant]
     Dosage: 25 MG, DAILY (1/D)

REACTIONS (5)
  - ANGINA PECTORIS [None]
  - DYSPNOEA [None]
  - MENTAL DISORDER [None]
  - PSYCHOMOTOR HYPERACTIVITY [None]
  - SWELLING [None]
